FAERS Safety Report 11189673 (Version 5)
Quarter: 2018Q2

REPORT INFORMATION
  Report Type: Spontaneous
  Country: US (occurrence: US)
  Receive Date: 20150615
  Receipt Date: 20180430
  Transmission Date: 20180711
  Serious: Yes (Hospitalization, Other)
  Sender: FDA-Public Use
  Company Number: US-DSJP-DSU-2015-112905

PATIENT

DRUGS (13)
  1. BENICAR [Suspect]
     Active Substance: OLMESARTAN MEDOXOMIL
     Indication: HYPERTENSION
     Dosage: 20 MG, UNK
     Dates: start: 20050715
  2. SINGULAIR [Concomitant]
     Active Substance: MONTELUKAST SODIUM
     Indication: PRODUCT USED FOR UNKNOWN INDICATION
     Dosage: 10 MG, QD
     Dates: start: 20140520
  3. FOSAMAX [Concomitant]
     Active Substance: ALENDRONATE SODIUM
     Indication: PRODUCT USED FOR UNKNOWN INDICATION
     Dosage: 70 MG, ONCE EVERY 1 WK
     Dates: start: 20140216
  4. CIPROFLOXACIN. [Concomitant]
     Active Substance: CIPROFLOXACIN
     Indication: PRODUCT USED FOR UNKNOWN INDICATION
     Dosage: 500 MG, BID
     Dates: start: 20140202, end: 20140205
  5. BENICAR HCT [Suspect]
     Active Substance: HYDROCHLOROTHIAZIDE\OLMESARTAN MEDOXOMIL
     Dosage: 40/12.5 MG
     Dates: start: 20050715
  6. PRILOSEC [Concomitant]
     Active Substance: OMEPRAZOLE MAGNESIUM
     Indication: PRODUCT USED FOR UNKNOWN INDICATION
     Dosage: 20 MG, QD
     Dates: start: 20140407
  7. VERAMYST [Concomitant]
     Active Substance: FLUTICASONE FUROATE
     Indication: PRODUCT USED FOR UNKNOWN INDICATION
     Dosage: 27.5 MCG/ACTUATION, UNK
     Dates: start: 20140226
  8. PYRIDIUM [Concomitant]
     Active Substance: PHENAZOPYRIDINE
     Indication: PRODUCT USED FOR UNKNOWN INDICATION
     Dosage: 200 MG, TID
     Dates: start: 20140202, end: 20140204
  9. BENICAR HCT [Suspect]
     Active Substance: HYDROCHLOROTHIAZIDE\OLMESARTAN MEDOXOMIL
     Indication: HYPERTENSION
     Dosage: 20MG/12.5MG, QD
     Route: 048
     Dates: start: 20050715
  10. FLOMAX [Concomitant]
     Active Substance: TAMSULOSIN HYDROCHLORIDE
     Indication: PRODUCT USED FOR UNKNOWN INDICATION
     Dosage: 0.4 MG, QD
     Dates: start: 20140520
  11. CALTREX [Concomitant]
     Indication: PRODUCT USED FOR UNKNOWN INDICATION
     Dosage: 600 MG, BID
     Dates: start: 20140212
  12. MOBIC [Concomitant]
     Active Substance: MELOXICAM
     Indication: PRODUCT USED FOR UNKNOWN INDICATION
     Dosage: 7.5 MG, QD
     Dates: start: 20140407
  13. BYSTOLIC [Concomitant]
     Active Substance: NEBIVOLOL HYDROCHLORIDE
     Indication: PRODUCT USED FOR UNKNOWN INDICATION
     Dosage: 5 MG, QD
     Dates: start: 20140407

REACTIONS (13)
  - Chest pain [Unknown]
  - Peptic ulcer [Unknown]
  - Colitis [Not Recovered/Not Resolved]
  - Large intestinal obstruction [Unknown]
  - Gastroenteritis viral [Recovering/Resolving]
  - Urinary tract pain [Not Recovered/Not Resolved]
  - Sprue-like enteropathy [Unknown]
  - Lactose intolerance [Unknown]
  - Urinary incontinence [Unknown]
  - Diverticulum intestinal [Unknown]
  - Urinary tract infection [Unknown]
  - Hiatus hernia [Unknown]
  - Hypotension [Unknown]

NARRATIVE: CASE EVENT DATE: 2013
